FAERS Safety Report 16296978 (Version 1)
Quarter: 2019Q2

REPORT INFORMATION
  Report Type: Spontaneous
  Country: US (occurrence: US)
  Receive Date: 20190509
  Receipt Date: 20190509
  Transmission Date: 20190711
  Serious: No
  Sender: FDA-Public Use
  Company Number: None

PATIENT
  Age: 55 Year
  Sex: Female
  Weight: 76.5 kg

DRUGS (12)
  1. PRAVASTATIN. [Concomitant]
     Active Substance: PRAVASTATIN
  2. ALLEGRA [Concomitant]
     Active Substance: FEXOFENADINE HYDROCHLORIDE
  3. ASPIRIN. [Concomitant]
     Active Substance: ASPIRIN
  4. GLIPZIDE [Concomitant]
     Active Substance: GLIPIZIDE
  5. MULTIVITAMIN [Concomitant]
     Active Substance: VITAMINS
  6. FLONASE [Concomitant]
     Active Substance: FLUTICASONE PROPIONATE
  7. TRAJENTA [Concomitant]
     Active Substance: LINAGLIPTIN
  8. OMAPROZOLE [Concomitant]
  9. JARDIANCE [Suspect]
     Active Substance: EMPAGLIFLOZIN
     Indication: GLYCOSYLATED HAEMOGLOBIN INCREASED
     Route: 048
  10. METFORMIN [Concomitant]
     Active Substance: METFORMIN HYDROCHLORIDE
  11. LISINOPRIL. [Concomitant]
     Active Substance: LISINOPRIL
  12. BYDUREON [Concomitant]
     Active Substance: EXENATIDE

REACTIONS (2)
  - Vulvovaginal hypoaesthesia [None]
  - Fungal infection [None]

NARRATIVE: CASE EVENT DATE: 20181106
